FAERS Safety Report 21826865 (Version 1)
Quarter: 2023Q1

REPORT INFORMATION
  Report Type: Spontaneous
  Country: CN (occurrence: CN)
  Receive Date: 20230106
  Receipt Date: 20230106
  Transmission Date: 20230417
  Serious: Yes (Other)
  Sender: FDA-Public Use
  Company Number: CN-AMGEN-CHNSP2023000241

PATIENT
  Age: 34 Year
  Sex: Male

DRUGS (7)
  1. FILGRASTIM [Suspect]
     Active Substance: FILGRASTIM
     Indication: Prophylaxis
     Dosage: 50-600 MICROGRAM/DAY
     Route: 065
  2. CYTARABINE [Concomitant]
     Active Substance: CYTARABINE
     Indication: Chronic myeloid leukaemia
     Dosage: 10 MILLIGRAM/SQ. METER, Q12H
     Route: 058
  3. DECITABINE [Concomitant]
     Active Substance: DECITABINE
     Indication: Chronic myeloid leukaemia
     Dosage: 20 MILLIGRAM/SQ. METER, QID
  4. OMACETAXINE MEPESUCCINATE [Concomitant]
     Active Substance: OMACETAXINE MEPESUCCINATE
     Indication: Chronic myeloid leukaemia
     Dosage: 1 MILLIGRAM, QID
  5. ACLARUBICIN [Concomitant]
     Active Substance: ACLARUBICIN
     Indication: Chronic myeloid leukaemia
     Dosage: 10 MILLIGRAM, QID
  6. FLUDARABINE [Concomitant]
     Active Substance: FLUDARABINE PHOSPHATE
     Indication: Chronic myeloid leukaemia
  7. CYCLOPHOSPHAMIDE [Concomitant]
     Active Substance: CYCLOPHOSPHAMIDE
     Indication: Chronic myeloid leukaemia
     Dosage: UNK

REACTIONS (3)
  - Myelosuppression [Unknown]
  - Cytokine increased [Unknown]
  - Inflammatory marker increased [Unknown]
